FAERS Safety Report 6157643-7 (Version None)
Quarter: 2009Q3

REPORT INFORMATION
  Report Type: 
  Country: None (occurrence: None)
  Receive Date: 20090414
  Receipt Date: 20090414
  Transmission Date: 20100115
  Serious: No
  Sender: FDA-Public Use
  Company Number: None

PATIENT
  Age: 66 Year
  Sex: Male
  Weight: 100.6985 kg

DRUGS (1)
  1. AVODART [Suspect]

REACTIONS (1)
  - ERECTILE DYSFUNCTION [None]
